FAERS Safety Report 17873588 (Version 1)
Quarter: 2020Q2

REPORT INFORMATION
  Report Type: Spontaneous
  Country: US (occurrence: US)
  Receive Date: 20200609
  Receipt Date: 20200609
  Transmission Date: 20200714
  Serious: No
  Sender: FDA-Public Use
  Company Number: US-ASTRAZENECA-2020SE72103

PATIENT
  Sex: Male
  Weight: 74.8 kg

DRUGS (6)
  1. BEVESPI AEROSPHERE [Suspect]
     Active Substance: FORMOTEROL FUMARATE\GLYCOPYRROLATE
     Indication: CHRONIC OBSTRUCTIVE PULMONARY DISEASE
     Dosage: 9 MCG/INHAL
     Route: 055
     Dates: start: 201905
  2. ASPIRIN. [Concomitant]
     Active Substance: ASPIRIN
  3. FOLIC ACID. [Concomitant]
     Active Substance: FOLIC ACID
     Indication: PROTEIN TOTAL
  4. OXYGEN. [Concomitant]
     Active Substance: OXYGEN
  5. LOSARTAN. [Concomitant]
     Active Substance: LOSARTAN
  6. CARTIA [Concomitant]
     Indication: ARRHYTHMIA

REACTIONS (2)
  - Intentional product misuse [Unknown]
  - Laryngitis [Recovering/Resolving]
